FAERS Safety Report 6418035-6 (Version None)
Quarter: 2009Q4

REPORT INFORMATION
  Report Type: 
  Country: None (occurrence: None)
  Receive Date: 20091028
  Receipt Date: 20091016
  Transmission Date: 20100525
  Serious: Yes (Other)
  Sender: FDA-Public Use
  Company Number: US-PFIZER INC-2009284331

PATIENT
  Sex: Female

DRUGS (1)
  1. GEODON [Suspect]
     Indication: PSYCHOTIC DISORDER

REACTIONS (2)
  - PARKINSON'S DISEASE [None]
  - TREMOR [None]
